FAERS Safety Report 6474029-6 (Version None)
Quarter: 2009Q4

REPORT INFORMATION
  Report Type: 
  Country: None (occurrence: None)
  Receive Date: 20091204
  Receipt Date: 20090121
  Transmission Date: 20100525
  Serious: No
  Sender: FDA-Public Use
  Company Number: US-AMGEN-KDL325615

PATIENT
  Sex: Female

DRUGS (8)
  1. ENBREL [Suspect]
     Indication: PSORIASIS
     Route: 030
     Dates: start: 20081223, end: 20090114
  2. UNSPECIFIED CONTRACEPTIVE [Concomitant]
  3. ZOLOFT [Concomitant]
  4. LEXAPRO [Concomitant]
  5. ZOCOR [Concomitant]
  6. CLOBETASOL PROPIONATE [Concomitant]
  7. DESONIDE [Concomitant]
  8. UNSPECIFIED MEDICATION [Concomitant]

REACTIONS (3)
  - DIZZINESS [None]
  - INJECTION SITE PAIN [None]
  - SYNCOPE [None]
